FAERS Safety Report 5913343-7 (Version None)
Quarter: 2008Q4

REPORT INFORMATION
  Report Type: 
  Country: None (occurrence: None)
  Receive Date: 20081009
  Receipt Date: 20081001
  Transmission Date: 20090506
  Serious: Yes (Hospitalization)
  Sender: FDA-Public Use
  Company Number: PHHY2008MX23227

PATIENT
  Sex: Female

DRUGS (1)
  1. ZELMAC [Suspect]
     Indication: IRRITABLE BOWEL SYNDROME
     Dosage: 6MG PER DAY
     Route: 048
     Dates: start: 20080901, end: 20080901

REACTIONS (2)
  - HAEMORRHAGE URINARY TRACT [None]
  - RENAL PAIN [None]
